FAERS Safety Report 16968700 (Version 2)
Quarter: 2019Q4

REPORT INFORMATION
  Report Type: Spontaneous
  Country: KR (occurrence: KR)
  Receive Date: 20191029
  Receipt Date: 20191119
  Transmission Date: 20200122
  Serious: No
  Sender: FDA-Public Use
  Company Number: KR-TAKEDA-2019TUS060170

PATIENT
  Age: 7 Decade
  Sex: Female

DRUGS (1)
  1. BRIGATINIB [Suspect]
     Active Substance: BRIGATINIB
     Indication: NON-SMALL CELL LUNG CANCER
     Dosage: 90 MILLIGRAM, QD
     Route: 048
     Dates: start: 201906, end: 201906

REACTIONS (1)
  - Lung disorder [Not Recovered/Not Resolved]

NARRATIVE: CASE EVENT DATE: 201906
